FAERS Safety Report 11814027 (Version 1)
Quarter: 2015Q4

REPORT INFORMATION
  Report Type: Spontaneous
  Country: GB (occurrence: GB)
  Receive Date: 20151209
  Receipt Date: 20151209
  Transmission Date: 20160305
  Serious: Yes (Other)
  Sender: FDA-Public Use
  Company Number: GB-JNJFOC-20151203403

PATIENT
  Sex: Female
  Weight: 60.33 kg

DRUGS (1)
  1. SIMPONI [Suspect]
     Active Substance: GOLIMUMAB
     Indication: PRODUCT USED FOR UNKNOWN INDICATION
     Route: 058

REACTIONS (4)
  - Heart rate decreased [Unknown]
  - Weight increased [Unknown]
  - Joint stiffness [Recovered/Resolved]
  - Injection site pain [Recovered/Resolved]
